FAERS Safety Report 4699543-5 (Version None)
Quarter: 2005Q2

REPORT INFORMATION
  Report Type: 
  Country: None (occurrence: None)
  Receive Date: 20050624
  Receipt Date: 20050321
  Transmission Date: 20051028
  Serious: Yes (Hospitalization)
  Sender: FDA-Public Use
  Company Number: 200511009FR

PATIENT
  Age: 42 Year
  Sex: Female

DRUGS (2)
  1. TAXOTERE [Suspect]
     Indication: BREAST CANCER METASTATIC
     Route: 042
  2. HERCEPTINE [Suspect]

REACTIONS (11)
  - ABDOMINAL TENDERNESS [None]
  - BACK PAIN [None]
  - METASTASES TO BONE [None]
  - METASTASES TO LIVER [None]
  - PYODERMA GANGRENOSUM [None]
  - PYREXIA [None]
  - SEPSIS [None]
  - SERRATIA INFECTION [None]
  - SKIN NECROSIS [None]
  - SKIN ULCER [None]
  - VASCULITIS [None]
